FAERS Safety Report 11781922 (Version 1)
Quarter: 2015Q4

REPORT INFORMATION
  Report Type: Spontaneous
  Country: SE (occurrence: SE)
  Receive Date: 20151126
  Receipt Date: 20151126
  Transmission Date: 20160305
  Serious: Yes (Other)
  Sender: FDA-Public Use
  Company Number: SE-009507513-1511SWE009985

PATIENT
  Age: 77 Year
  Sex: Female

DRUGS (9)
  1. ESOMEPRAZOLE [Concomitant]
     Active Substance: ESOMEPRAZOLE
  2. ATENOLOL. [Concomitant]
     Active Substance: ATENOLOL
  3. TROMBYL [Concomitant]
     Active Substance: ASPIRIN
  4. EZETROL [Suspect]
     Active Substance: EZETIMIBE
     Indication: DYSLIPIDAEMIA
     Dosage: 10 MG, QD
     Dates: start: 20151101, end: 20151107
  5. BRILIQUE [Concomitant]
     Active Substance: TICAGRELOR
  6. METFORMIN [Concomitant]
     Active Substance: METFORMIN HYDROCHLORIDE
  7. INOLAXOL [Concomitant]
  8. COZAAR COMP 50 MG/12,5 MG FILMDRAGERADE TABLETTER [Concomitant]
  9. LEVAXIN [Concomitant]
     Active Substance: LEVOTHYROXINE SODIUM

REACTIONS (5)
  - Foot deformity [Not Recovered/Not Resolved]
  - Peripheral swelling [Not Recovered/Not Resolved]
  - Pain in extremity [Not Recovered/Not Resolved]
  - Burning sensation [Not Recovered/Not Resolved]
  - Face oedema [Not Recovered/Not Resolved]

NARRATIVE: CASE EVENT DATE: 20151101
